FAERS Safety Report 6507217-0 (Version None)
Quarter: 2009Q4

REPORT INFORMATION
  Report Type: 
  Country: None (occurrence: None)
  Receive Date: 20091221
  Receipt Date: 20091211
  Transmission Date: 20100525
  Serious: Yes (Hospitalization)
  Sender: FDA-Public Use
  Company Number: PHHY2009FR55275

PATIENT
  Age: 70 Year
  Sex: Male

DRUGS (1)
  1. RASILEZ [Suspect]

REACTIONS (1)
  - CARDIAC FAILURE [None]
